FAERS Safety Report 8544373-7 (Version None)
Quarter: 2012Q3

REPORT INFORMATION
  Report Type: 
  Country: None (occurrence: None)
  Receive Date: 20120717
  Receipt Date: 20120702
  Transmission Date: 20120928
  Serious: Yes (Hospitalization)
  Sender: FDA-Public Use
  Company Number: TPA2012A04311

PATIENT
  Age: 64 Year
  Sex: Female
  Weight: 28.5766 kg

DRUGS (4)
  1. ACTOS [Suspect]
     Indication: DIABETES MELLITUS
     Dosage: 20 MG, PER ORAL
     Route: 048
     Dates: start: 20040101, end: 20120601
  2. ASPIRIN [Concomitant]
  3. DIOVAN HCT [Concomitant]
  4. INSULIN (INSULIN) [Concomitant]

REACTIONS (4)
  - HYPERSENSITIVITY [None]
  - MYOCARDIAL INFARCTION [None]
  - FALL [None]
  - GASTRITIS EROSIVE [None]
